FAERS Safety Report 8797397 (Version 2)
Quarter: 2015Q1

REPORT INFORMATION
  Report Type: Report from Study
  Country: US (occurrence: US)
  Receive Date: 20120919
  Receipt Date: 20150318
  Transmission Date: 20150721
  Serious: Yes (Death)
  Sender: FDA-Public Use
  Company Number: US-ROCHE-1123384

PATIENT
  Sex: Female
  Weight: 47 kg

DRUGS (14)
  1. OXYCODONE [Concomitant]
     Active Substance: OXYCODONE
  2. AVASTIN [Suspect]
     Active Substance: BEVACIZUMAB
     Route: 042
     Dates: start: 20060224
  3. CARBOPLATIN. [Concomitant]
     Active Substance: CARBOPLATIN
     Route: 042
  4. PACLITAXEL. [Concomitant]
     Active Substance: PACLITAXEL
     Route: 042
  5. PROCRIT [Concomitant]
     Active Substance: ERYTHROPOIETIN
  6. AVASTIN [Suspect]
     Active Substance: BEVACIZUMAB
     Route: 042
     Dates: start: 20060210
  7. ANZEMET [Concomitant]
     Active Substance: DOLASETRON MESYLATE
     Route: 042
  8. AVASTIN [Suspect]
     Active Substance: BEVACIZUMAB
     Route: 042
     Dates: start: 20060530
  9. BENADRYL [Concomitant]
     Active Substance: DIPHENHYDRAMINE HYDROCHLORIDE
     Route: 042
  10. DECADRON [Concomitant]
     Active Substance: DEXAMETHASONE
     Route: 042
  11. ZANTAC [Concomitant]
     Active Substance: RANITIDINE HYDROCHLORIDE
     Route: 042
  12. AVASTIN [Suspect]
     Active Substance: BEVACIZUMAB
     Route: 042
     Dates: start: 20060516
  13. NEULASTA [Concomitant]
     Active Substance: PEGFILGRASTIM
     Route: 058
  14. AVASTIN [Suspect]
     Active Substance: BEVACIZUMAB
     Indication: LUNG NEOPLASM MALIGNANT
     Dosage: 5 MG/KG
     Route: 042
     Dates: start: 20060127

REACTIONS (6)
  - Death [Fatal]
  - Nausea [Unknown]
  - Vomiting [Unknown]
  - Peripheral coldness [Unknown]
  - Constipation [Unknown]
  - Pain in extremity [Unknown]
